FAERS Safety Report 19080372 (Version 5)
Quarter: 2021Q2

REPORT INFORMATION
  Report Type: Report from Study
  Country: US (occurrence: US)
  Receive Date: 20210331
  Receipt Date: 20210427
  Transmission Date: 20210717
  Serious: Yes (Other)
  Sender: FDA-Public Use
  Company Number: NVSC2021US073605

PATIENT
  Age: 54 Year
  Sex: Female

DRUGS (2)
  1. ENTRESTO [Suspect]
     Active Substance: SACUBITRIL\VALSARTAN
     Dosage: 1 DF, BID (CONC: 49/51 MG)
     Route: 048
     Dates: start: 20210412
  2. ENTRESTO [Suspect]
     Active Substance: SACUBITRIL\VALSARTAN
     Indication: CARDIAC FAILURE
     Dosage: 1 DF, BID (CONC; 24/26 MG)
     Route: 048
     Dates: start: 20210327

REACTIONS (5)
  - Diarrhoea [Unknown]
  - Product dose omission issue [Unknown]
  - Groin pain [Unknown]
  - Weight increased [Unknown]
  - Coronary artery occlusion [Unknown]

NARRATIVE: CASE EVENT DATE: 202103
